FAERS Safety Report 11147998 (Version 1)
Quarter: 2015Q2

REPORT INFORMATION
  Report Type: Report from Study
  Country: US (occurrence: US)
  Receive Date: 20150529
  Receipt Date: 20150529
  Transmission Date: 20150821
  Serious: Yes (Hospitalization)
  Sender: FDA-Public Use
  Company Number: US-ABBVIE-15K-163-1396454-00

PATIENT
  Age: 49 Year
  Sex: Female

DRUGS (1)
  1. HUMIRA [Suspect]
     Active Substance: ADALIMUMAB
     Indication: PSORIASIS
     Route: 065
     Dates: start: 20150417

REACTIONS (10)
  - Rash [Recovering/Resolving]
  - Pyrexia [Recovered/Resolved]
  - Blood magnesium decreased [Unknown]
  - Panic attack [Recovered/Resolved]
  - Nausea [Unknown]
  - Blood potassium decreased [Unknown]
  - Local swelling [Unknown]
  - Anxiety [Recovered/Resolved]
  - Malaise [Unknown]
  - White blood cell count increased [Unknown]

NARRATIVE: CASE EVENT DATE: 201505
